FAERS Safety Report 8169444-9 (Version None)
Quarter: 2012Q1

REPORT INFORMATION
  Report Type: 
  Country: None (occurrence: None)
  Receive Date: 20120222
  Receipt Date: 20120207
  Transmission Date: 20120608
  Serious: Yes (Hospitalization, Disabling)
  Sender: FDA-Public Use
  Company Number: PNIS20120002

PATIENT
  Age: 8 Year
  Sex: Female

DRUGS (3)
  1. PREDNISOLONE [Suspect]
     Indication: CROHN'S DISEASE
     Dosage: 40 MG, 1 IN 1 D, ORAL
     Route: 048
  2. INFLIXIMAB (INFLIXIMAB) [Suspect]
     Indication: CROHN'S DISEASE
     Dosage: 5 MG/KG, INTRAVENOUS
     Route: 042
  3. HYDROCORTONE [Suspect]
     Indication: CROHN'S DISEASE
     Dosage: 16 RMG/KG, 4IN 1 D, INTRAVENOUS
     Route: 042

REACTIONS (17)
  - COMA SCALE ABNORMAL [None]
  - BLOOD PRESSURE DECREASED [None]
  - BRADYCARDIA [None]
  - HYPERTENSION [None]
  - INTRACRANIAL PRESSURE INCREASED [None]
  - HYPERREFLEXIA [None]
  - CLONUS [None]
  - VISUAL IMPAIRMENT [None]
  - MYDRIASIS [None]
  - POST PROCEDURAL COMPLICATION [None]
  - DRUG EFFECT DECREASED [None]
  - UNRESPONSIVE TO STIMULI [None]
  - PARTIAL SEIZURES [None]
  - POSTERIOR REVERSIBLE ENCEPHALOPATHY SYNDROME [None]
  - PELVIC FLUID COLLECTION [None]
  - NAUSEA [None]
  - DEEP VEIN THROMBOSIS [None]
